FAERS Safety Report 23882622 (Version 1)
Quarter: 2024Q2

REPORT INFORMATION
  Report Type: Spontaneous
  Country: CN (occurrence: CN)
  Receive Date: 20240522
  Receipt Date: 20240522
  Transmission Date: 20240715
  Serious: Yes (Other)
  Sender: FDA-Public Use
  Company Number: CN-ARGENX-2024-ARGX-CN003313

PATIENT

DRUGS (1)
  1. VYVGART [Suspect]
     Active Substance: EFGARTIGIMOD ALFA-FCAB
     Indication: Myasthenia gravis
     Dosage: UNK, 400MG/ 20ML/ VIAL
     Route: 042

REACTIONS (2)
  - Immunosuppression [Unknown]
  - Dermatitis allergic [Unknown]
